FAERS Safety Report 6439424-X (Version None)
Quarter: 2009Q4

REPORT INFORMATION
  Report Type: 
  Country: None (occurrence: None)
  Receive Date: 20091113
  Receipt Date: 20091016
  Transmission Date: 20100525
  Serious: No
  Sender: FDA-Public Use
  Company Number: US-BAYER-200915784BCC

PATIENT
  Age: 67 Year
  Sex: Female
  Weight: 101 kg

DRUGS (4)
  1. ALEVE (CAPLET) [Suspect]
     Indication: PAIN IN EXTREMITY
     Dosage: TOTAL DAILY DOSE: 220 MG  UNIT DOSE: 220 MG
     Route: 048
     Dates: start: 20091014, end: 20091014
  2. ALEVE (CAPLET) [Suspect]
     Dosage: TOTAL DAILY DOSE: 220 MG  UNIT DOSE: 220 MG
     Route: 048
     Dates: start: 20091015
  3. FUROSEMIDE [Concomitant]
     Route: 065
  4. HUMULIN R [Concomitant]
     Route: 065

REACTIONS (1)
  - SOMNOLENCE [None]
